FAERS Safety Report 21159314 (Version 2)
Quarter: 2022Q3

REPORT INFORMATION
  Report Type: Report from Study
  Country: US (occurrence: US)
  Receive Date: 20220802
  Receipt Date: 20220912
  Transmission Date: 20221027
  Serious: Yes (Hospitalization, Other)
  Sender: FDA-Public Use
  Company Number: US-GILEAD-2022-0591840

PATIENT
  Age: 12 Year
  Sex: Male

DRUGS (5)
  1. AZTREONAM LYSINE [Suspect]
     Active Substance: AZTREONAM LYSINE
     Indication: Cystic fibrosis
     Dosage: 75 MG, TID, 28 DAYS ON AND 28 DAYS OFF
     Route: 055
  2. IBUPROFEN [Concomitant]
     Active Substance: IBUPROFEN
     Dosage: IBUPROFEN 200 MG
  3. CLARITHROMYCIN [Concomitant]
     Active Substance: CLARITHROMYCIN
     Dosage: CLARITIN 10 MG
  4. VITAMINS NOS [Concomitant]
     Active Substance: VITAMINS
  5. COLISTIN SULFATE [Concomitant]
     Active Substance: COLISTIN SULFATE

REACTIONS (2)
  - Lung operation [Unknown]
  - Pneumonia [Unknown]

NARRATIVE: CASE EVENT DATE: 20220705
